FAERS Safety Report 8391164-6 (Version None)
Quarter: 2012Q2

REPORT INFORMATION
  Report Type: 
  Country: None (occurrence: None)
  Receive Date: 20120529
  Receipt Date: 20120515
  Transmission Date: 20120825
  Serious: Yes (Hospitalization, Other)
  Sender: FDA-Public Use
  Company Number: HU-ELI_LILLY_AND_COMPANY-HU201205003976

PATIENT
  Age: 78 Year
  Sex: Female

DRUGS (7)
  1. BISOPROLOL FUMARATE [Concomitant]
     Dosage: 10 MG, UNK
  2. ASPIRIN [Concomitant]
     Dosage: 100 MG, UNK
  3. EGITROMB [Concomitant]
     Dosage: 1 DF, EACH MORNING
  4. ALLOPURINOL [Concomitant]
  5. NOLPAZA [Concomitant]
  6. CYMBALTA [Suspect]
     Dosage: 60 MG, QD
     Route: 048
     Dates: start: 20120203, end: 20120205
  7. CAVINTON [Concomitant]

REACTIONS (5)
  - RENAL IMPAIRMENT [None]
  - DECREASED APPETITE [None]
  - DEHYDRATION [None]
  - SLOW RESPONSE TO STIMULI [None]
  - NAUSEA [None]
